FAERS Safety Report 18124301 (Version 2)
Quarter: 2020Q4

REPORT INFORMATION
  Report Type: Spontaneous
  Country: AR (occurrence: AR)
  Receive Date: 20200807
  Receipt Date: 20201015
  Transmission Date: 20210113
  Serious: Yes (Other)
  Sender: FDA-Public Use
  Company Number: NVSC2020AR218710

PATIENT
  Age: 65 Year
  Sex: Female

DRUGS (2)
  1. TAFINLAR COMBO [Suspect]
     Active Substance: DABRAFENIB\TRAMETINIB
     Indication: METASTASIS
     Dosage: UNK
     Route: 048
  2. TAFINLAR COMBO [Suspect]
     Active Substance: DABRAFENIB\TRAMETINIB
     Indication: MALIGNANT MELANOMA

REACTIONS (3)
  - Renal impairment [Unknown]
  - Decreased appetite [Unknown]
  - Hepatic enzyme increased [Unknown]
